FAERS Safety Report 4678907-X (Version None)
Quarter: 2005Q2

REPORT INFORMATION
  Report Type: 
  Country: None (occurrence: None)
  Receive Date: 20050531
  Receipt Date: 20050506
  Transmission Date: 20051028
  Serious: Yes (Other)
  Sender: FDA-Public Use
  Company Number: PAR_0048_2005

PATIENT
  Age: 45 Year
  Sex: Male

DRUGS (1)
  1. MEGESTROL ACETATE [Suspect]
     Indication: WEIGHT INCREASED
     Dosage: DF PO
     Route: 048

REACTIONS (4)
  - ANAPHYLACTIC SHOCK [None]
  - FLATULENCE [None]
  - GASTROINTESTINAL DISORDER [None]
  - WEIGHT DECREASED [None]
